FAERS Safety Report 9432351 (Version 1)
Quarter: 2013Q3

REPORT INFORMATION
  Report Type: Spontaneous
  Country: SE (occurrence: SE)
  Receive Date: 20130731
  Receipt Date: 20130731
  Transmission Date: 20140515
  Serious: Yes (Hospitalization)
  Sender: FDA-Public Use
  Company Number: SE-PFIZER INC-2013220622

PATIENT
  Age: 27 Year
  Sex: Male

DRUGS (5)
  1. LYRICA [Suspect]
  2. MIRTAZAPINE ARROW [Suspect]
  3. NALTREXONE VITAFLO [Suspect]
  4. VENLAFAXINE ACTAVIS [Suspect]
  5. IKTORIVIL [Suspect]

REACTIONS (2)
  - Toxicity to various agents [Recovered/Resolved]
  - Suicide attempt [Recovered/Resolved]
